FAERS Safety Report 17511835 (Version 2)
Quarter: 2020Q1

REPORT INFORMATION
  Report Type: Spontaneous
  Country: IR (occurrence: IR)
  Receive Date: 20200307
  Receipt Date: 20200331
  Transmission Date: 20200409
  Serious: Yes (Life-Threatening, Hospitalization, Other)
  Sender: FDA-Public Use
  Company Number: IR-ACCORD-174828

PATIENT
  Age: 77 Year
  Sex: Female

DRUGS (2)
  1. GLIBENCLAMIDE [Concomitant]
     Active Substance: GLYBURIDE
     Indication: DIABETES MELLITUS
  2. METHOTREXATE. [Suspect]
     Active Substance: METHOTREXATE
     Indication: RHEUMATOID ARTHRITIS

REACTIONS (10)
  - Erythema [Recovered/Resolved]
  - Blood creatinine increased [Recovered/Resolved]
  - Oedema mucosal [Recovered/Resolved]
  - Conjunctival irritation [Recovered/Resolved]
  - Petechiae [Recovered/Resolved]
  - Toxicity to various agents [Unknown]
  - Electrocardiogram T wave inversion [Recovered/Resolved]
  - Platelet count decreased [Recovered/Resolved]
  - Leukopenia [Recovered/Resolved]
  - Inappropriate schedule of product administration [Unknown]
